FAERS Safety Report 7061057-5 (Version None)
Quarter: 2010Q4

REPORT INFORMATION
  Report Type: 
  Country: None (occurrence: None)
  Receive Date: 20101026
  Receipt Date: 20101020
  Transmission Date: 20110411
  Serious: Yes (Other)
  Sender: FDA-Public Use
  Company Number: ES-PFIZER INC-2010123466

PATIENT
  Sex: Female

DRUGS (1)
  1. CHAMPIX [Suspect]
     Indication: SMOKING CESSATION THERAPY
     Dosage: 1 MG, 2X/DAY
     Route: 048
     Dates: start: 20100901, end: 20101013

REACTIONS (6)
  - AGITATION [None]
  - ANXIETY [None]
  - DIZZINESS [None]
  - NERVOUSNESS [None]
  - TACHYCARDIA [None]
  - THYROID FUNCTION TEST ABNORMAL [None]
